FAERS Safety Report 19655729 (Version 1)
Quarter: 2021Q3

REPORT INFORMATION
  Report Type: Spontaneous
  Country: US (occurrence: US)
  Receive Date: 20210804
  Receipt Date: 20210804
  Transmission Date: 20211014
  Serious: Yes (Hospitalization)
  Sender: FDA-Public Use
  Company Number: US-STRIDES ARCOLAB LIMITED-2021SP004968

PATIENT
  Age: 45 Year
  Sex: Male

DRUGS (21)
  1. BACLOFEN. [Suspect]
     Active Substance: BACLOFEN
     Dosage: 171 MCG PER 24HR
     Route: 037
  2. GABAPENTIN. [Suspect]
     Active Substance: GABAPENTIN
     Indication: MUSCLE SPASMS
     Dosage: 200 MILLIGRAM X 2 PER DAYS
     Route: 065
  3. DIAZEPAM. [Suspect]
     Active Substance: DIAZEPAM
     Dosage: 5MG IN THE MORNING
     Route: 065
  4. DIAZEPAM. [Suspect]
     Active Substance: DIAZEPAM
     Dosage: 15 MILLIGRAM IN THE EVENING
     Route: 065
  5. TIZANIDINE. [Suspect]
     Active Substance: TIZANIDINE
     Indication: MUSCLE SPASMS
     Dosage: 4?8 MILLIGRAM PER DAY
     Route: 065
  6. DIAZEPAM. [Suspect]
     Active Substance: DIAZEPAM
     Dosage: 5 MILLIGRAM
     Route: 065
  7. NATALIZUMAB [Concomitant]
     Active Substance: NATALIZUMAB
     Dosage: 300 MILLIGRAM/ 15ML INJECTION PER MONTH
  8. BACLOFEN. [Suspect]
     Active Substance: BACLOFEN
     Dosage: UNK
     Route: 037
  9. BACLOFEN. [Suspect]
     Active Substance: BACLOFEN
     Dosage: 180 MCG PER 24HR
     Route: 037
  10. BACLOFEN. [Suspect]
     Active Substance: BACLOFEN
     Dosage: 108 MCG PER 24HR
     Route: 037
  11. LORAZEPAM. [Suspect]
     Active Substance: LORAZEPAM
     Indication: MUSCLE SPASMS
     Dosage: 1 MILLIGRAM 2?4X/DAY
     Route: 065
  12. DIAZEPAM. [Suspect]
     Active Substance: DIAZEPAM
     Dosage: 2.5 MILLIGRAM EVERY SIX HOURS
     Route: 065
  13. TIZANIDINE. [Suspect]
     Active Substance: TIZANIDINE
     Dosage: 3 MILLIGRAM 2X/DAY
     Route: 065
  14. NATALIZUMAB [Concomitant]
     Active Substance: NATALIZUMAB
     Indication: MULTIPLE SCLEROSIS
     Dosage: 300 MILLIGRAM/ 15ML INJECTION PER MONTH
  15. OXCARBAZEPINE. [Suspect]
     Active Substance: OXCARBAZEPINE
     Dosage: 300 MILLIGRAM 2X/DAY
     Route: 065
  16. BACLOFEN. [Suspect]
     Active Substance: BACLOFEN
     Indication: MUSCLE SPASMS
     Dosage: UNK
     Route: 048
  17. GABAPENTIN. [Suspect]
     Active Substance: GABAPENTIN
     Dosage: 600 MILLIGRAM X 3/DAY
     Route: 065
  18. OXCARBAZEPINE. [Suspect]
     Active Substance: OXCARBAZEPINE
     Indication: MUSCLE SPASMS
     Dosage: 600 MILLIGRAM 2X/DAY
     Route: 065
  19. BACLOFEN. [Suspect]
     Active Substance: BACLOFEN
     Dosage: 150 MCG PER 24HR
     Route: 037
  20. BACLOFEN. [Suspect]
     Active Substance: BACLOFEN
     Dosage: 161 MCG PER 24 HR
     Route: 037
  21. DIAZEPAM. [Suspect]
     Active Substance: DIAZEPAM
     Indication: MUSCLE SPASMS
     Dosage: 5 MILLIGRAM 4X/DAY
     Route: 065

REACTIONS (3)
  - Off label use [Unknown]
  - Drug ineffective [Unknown]
  - Therapy partial responder [Unknown]
